FAERS Safety Report 14680213 (Version 2)
Quarter: 2018Q1

REPORT INFORMATION
  Report Type: Spontaneous
  Country: US (occurrence: US)
  Receive Date: 20180326
  Receipt Date: 20180329
  Transmission Date: 20180509
  Serious: Yes (Other)
  Sender: FDA-Public Use
  Company Number: US-PFIZER INC-2018119683

PATIENT
  Age: 71 Year
  Sex: Male

DRUGS (16)
  1. LORAZEPAM. [Concomitant]
     Active Substance: LORAZEPAM
     Indication: CATATONIA
     Dosage: 1 MG, 3X/DAY , WITH PRN LORAZEPAM AVAILABLE FOR BREAKTHROUGH CATATONIA
     Route: 051
  2. VALPROIC ACID. [Concomitant]
     Active Substance: VALPROIC ACID
     Indication: CATATONIA
     Dosage: 250 MG, AS NEEDED FOR (1 IN 2 HOURS)
     Route: 042
  3. TAMSULOSIN [Concomitant]
     Active Substance: TAMSULOSIN
     Dosage: 0.4 MG, 1X/DAY AT BEDTIME
     Route: 048
  4. VALPROIC ACID. [Concomitant]
     Active Substance: VALPROIC ACID
     Indication: AGITATION
     Dosage: 750 MG, 1X/DAY AT BEDTIME
     Route: 048
  5. VANCOMYCIN [Concomitant]
     Active Substance: VANCOMYCIN
     Indication: CLOSTRIDIUM DIFFICILE INFECTION
     Dosage: UNK
     Route: 048
  6. VALPROIC ACID. [Concomitant]
     Active Substance: VALPROIC ACID
     Dosage: 125 MG, 1X/DAY
     Route: 048
  7. DIVALPROEX [Concomitant]
     Active Substance: DIVALPROEX SODIUM
     Dosage: 125 MG, 1X/DAY
     Route: 048
  8. VALPROIC ACID. [Concomitant]
     Active Substance: VALPROIC ACID
     Dosage: 250 MG, 1X/DAY IN THE MORNING
     Route: 048
  9. ZIPRASIDONE MESILATE [Suspect]
     Active Substance: ZIPRASIDONE
     Dosage: UNK
     Route: 030
  10. AMLODIPINE [Concomitant]
     Active Substance: AMLODIPINE BESYLATE
     Dosage: 2.5 MG, 1X/DAY
     Route: 048
  11. SIMVASTATIN. [Concomitant]
     Active Substance: SIMVASTATIN
     Dosage: 5 MG, 1X/DAY AT BEDTIME
     Route: 048
  12. VALPROIC ACID. [Concomitant]
     Active Substance: VALPROIC ACID
     Dosage: 250 MG, 4X/DAY AS NEEDED EVERY 6 HOURS
     Route: 042
  13. ATENOLOL. [Concomitant]
     Active Substance: ATENOLOL
     Dosage: 25 MG, 1X/DAY
     Route: 048
  14. ACETYLSALICYLIC ACID [Concomitant]
     Active Substance: ASPIRIN
     Dosage: 81 MG, 1X/DAY
     Route: 048
  15. CEFTRIAXONE. [Concomitant]
     Active Substance: CEFTRIAXONE
     Indication: PNEUMONIA KLEBSIELLA
     Dosage: UNK
     Route: 042
  16. OLANZAPINE. [Concomitant]
     Active Substance: OLANZAPINE
     Dosage: 2.5 MG, UNK (BEDTIME)
     Route: 048

REACTIONS (2)
  - Disease recurrence [Recovering/Resolving]
  - Catatonia [Recovering/Resolving]
